FAERS Safety Report 21462668 (Version 1)
Quarter: 2022Q4

REPORT INFORMATION
  Report Type: Spontaneous
  Country: US (occurrence: US)
  Receive Date: 20221017
  Receipt Date: 20221017
  Transmission Date: 20230112
  Serious: No
  Sender: FDA-Public Use
  Company Number: US-UNITED THERAPEUTICS-UNT-2022-024343

PATIENT
  Sex: Female
  Weight: 93.424 kg

DRUGS (2)
  1. REMODULIN [Suspect]
     Active Substance: TREPROSTINIL
     Indication: Pulmonary arterial hypertension
     Dosage: UNK, CONTINUING
     Route: 058
     Dates: start: 20220227
  2. REMODULIN [Suspect]
     Active Substance: TREPROSTINIL
     Dosage: 0.00756 ?G/KG, CONTINUING
     Route: 058
     Dates: start: 2022

REACTIONS (3)
  - Infusion site pain [Recovered/Resolved]
  - Dyspnoea [Unknown]
  - Weight increased [Unknown]

NARRATIVE: CASE EVENT DATE: 20220101
